FAERS Safety Report 6396449-0 (Version None)
Quarter: 2009Q4

REPORT INFORMATION
  Report Type: 
  Country: None (occurrence: None)
  Receive Date: 20091012
  Receipt Date: 20091005
  Transmission Date: 20100525
  Serious: Yes (Hospitalization, Disabling, Other)
  Sender: FDA-Public Use
  Company Number: GB-WYE-G04558709

PATIENT
  Age: 11 Year
  Sex: Male

DRUGS (2)
  1. TAZOCIN [Suspect]
     Indication: ANTIBIOTIC THERAPY
     Dosage: UNKNOWN
     Route: 042
     Dates: start: 20090706, end: 20090707
  2. FLUCLOXACILLIN [Concomitant]
     Indication: PROPHYLAXIS
     Dosage: UNKNOWN
     Route: 048

REACTIONS (6)
  - ANXIETY [None]
  - FATIGUE [None]
  - MALAISE [None]
  - PYREXIA [None]
  - RASH [None]
  - VOMITING [None]
